FAERS Safety Report 5822851-9 (Version None)
Quarter: 2008Q3

REPORT INFORMATION
  Report Type: 
  Country: None (occurrence: None)
  Receive Date: 20080723
  Receipt Date: 20080626
  Transmission Date: 20090109
  Serious: No
  Sender: FDA-Public Use
  Company Number: LUP-0321

PATIENT
  Age: 60 Year
  Sex: Male

DRUGS (1)
  1. PRINZIDE [Suspect]
     Indication: DRUG USE FOR UNKNOWN INDICATION
     Dosage: 20/12.5 MG QD PO
     Route: 048
     Dates: start: 20080301, end: 20080301

REACTIONS (1)
  - HYPERSENSITIVITY [None]
